FAERS Safety Report 5260855-8 (Version None)
Quarter: 2007Q1

REPORT INFORMATION
  Report Type: 
  Country: None (occurrence: None)
  Receive Date: 20070306
  Receipt Date: 20070221
  Transmission Date: 20070707
  Serious: Yes (Death, Hospitalization)
  Sender: FDA-Public Use
  Company Number: 2007-00249

PATIENT
  Age: 62 Year
  Sex: Male
  Weight: 80 kg

DRUGS (7)
  1. VELCADE [Suspect]
     Indication: MULTIPLE MYELOMA
     Dosage: 2.50 MG, INTRAVENOUS
     Route: 042
     Dates: start: 20060707, end: 20061106
  2. DURAGESIC-100 [Suspect]
     Indication: PAIN
     Dosage: 75.00 UG, TRANSDERMAL
     Route: 062
     Dates: start: 20060818, end: 20061023
  3. AURCAL (PANTOPRAZOLE SODIUM) [Concomitant]
  4. CITALOPRAM HYDROBROMIDE [Concomitant]
  5. DAFALGAN (PARACETAMOL) [Concomitant]
  6. NEURONTIN [Concomitant]
  7. GASTROSIL (METOCLOPRAMIDE HYDROCHLORIDE) [Concomitant]

REACTIONS (3)
  - DISEASE PROGRESSION [None]
  - PSYCHOTIC DISORDER [None]
  - WEIGHT DECREASED [None]
